FAERS Safety Report 16280455 (Version 1)
Quarter: 2019Q2

REPORT INFORMATION
  Report Type: Spontaneous
  Country: US (occurrence: US)
  Receive Date: 20190507
  Receipt Date: 20190507
  Transmission Date: 20190711
  Serious: Yes (Other)
  Sender: FDA-Public Use
  Company Number: US-009507513-1905USA000389

PATIENT
  Age: 15 Year
  Sex: Male

DRUGS (3)
  1. METFORMIN [Concomitant]
     Active Substance: METFORMIN HYDROCHLORIDE
     Dosage: UNK
  2. KEYTRUDA [Suspect]
     Active Substance: PEMBROLIZUMAB
     Indication: ALVEOLAR SOFT PART SARCOMA METASTATIC
     Dosage: UNK
  3. AXITINIB [Concomitant]
     Active Substance: AXITINIB
     Indication: ALVEOLAR SOFT PART SARCOMA METASTATIC
     Dosage: UNK

REACTIONS (2)
  - Product use in unapproved indication [Unknown]
  - Type 1 diabetes mellitus [Unknown]
